FAERS Safety Report 5114469-0 (Version None)
Quarter: 2006Q3

REPORT INFORMATION
  Report Type: 
  Country: None (occurrence: None)
  Receive Date: 20060802
  Receipt Date: 20060609
  Transmission Date: 20061208
  Serious: Yes (Other)
  Sender: FDA-Public Use
  Company Number: 200512120US

PATIENT
  Age: 43 Year
  Sex: Female

DRUGS (6)
  1. KETEK [Suspect]
     Indication: ACUTE SINUSITIS
     Dosage: 400 MG QD PO
     Route: 048
     Dates: start: 20050305
  2. ANTIBIOTIC NOS [Concomitant]
  3. MESTINON [Concomitant]
  4. DESLORATADINE [Concomitant]
  5. MOMETASONE FUROATE (NASONEX) [Concomitant]
  6. PSEUDOEPHEDRINE HYDROCHLORIDE, FEXOFENADINE (ALLEGRA-D) [Concomitant]

REACTIONS (2)
  - EYELID DISORDER [None]
  - MYASTHENIA GRAVIS [None]
